FAERS Safety Report 11854702 (Version 1)
Quarter: 2015Q4

REPORT INFORMATION
  Report Type: Spontaneous
  Country: US (occurrence: None)
  Receive Date: 20151215
  Receipt Date: 20151215
  Transmission Date: 20160305
  Serious: Yes (Other)
  Sender: FDA-Public Use
  Company Number: AUR-APU-2015-02584

PATIENT
  Sex: Female

DRUGS (1)
  1. MIRTAZAPINE TABLETS 15 MG (MIRTAZAPINE) FILM-COATED TABLET, 15MG [Suspect]
     Active Substance: MIRTAZAPINE
     Indication: PRODUCT USED FOR UNKNOWN INDICATION
     Route: 048

REACTIONS (2)
  - Accidental overdose [None]
  - No adverse event [None]
